FAERS Safety Report 24878110 (Version 1)
Quarter: 2025Q1

REPORT INFORMATION
  Report Type: Spontaneous
  Country: JP (occurrence: JP)
  Receive Date: 20250123
  Receipt Date: 20250123
  Transmission Date: 20250409
  Serious: Yes (Hospitalization)
  Sender: MYLAN
  Company Number: JP-MYLANLABS-2025M1005095

PATIENT
  Age: 69 Year
  Sex: Male

DRUGS (5)
  1. VANCOMYCIN [Suspect]
     Active Substance: VANCOMYCIN
     Indication: Infectious pleural effusion
     Route: 065
  2. SITAFLOXACIN [Suspect]
     Active Substance: SITAFLOXACIN
     Indication: Urinary tract infection
     Route: 065
  3. AMPICILLIN SODIUM\SULBACTAM SODIUM [Suspect]
     Active Substance: AMPICILLIN SODIUM\SULBACTAM SODIUM
     Indication: Infectious pleural effusion
     Route: 065
  4. LINEZOLID [Concomitant]
     Active Substance: LINEZOLID
     Indication: Osteomyelitis
     Route: 048
  5. DAPTOMYCIN [Concomitant]
     Active Substance: DAPTOMYCIN
     Indication: Staphylococcal infection
     Route: 065

REACTIONS (1)
  - Drug ineffective [Unknown]
